FAERS Safety Report 8762898 (Version 2)
Quarter: 2013Q1

REPORT INFORMATION
  Report Type: Spontaneous
  Country: FR (occurrence: None)
  Receive Date: 20120823
  Receipt Date: 20121226
  Transmission Date: 20140127
  Serious: Yes (Hospitalization)
  Sender: FDA-Public Use
  Company Number: DKLU1083985

PATIENT
  Age: 50 Year
  Sex: Female

DRUGS (11)
  1. ONFI [Suspect]
     Indication: GRAND MAL CONVULSION
     Route: 048
     Dates: start: 20120616
  2. METFORMIN (METFORMIN) [Concomitant]
  3. DIAMICRON (GLICLAZIDE) [Concomitant]
  4. UMULINE (INSULIN HUMAN ZINC SUSPENSION) [Concomitant]
  5. DEPAKINE CHRONO (ERGENYL CHRONO) [Concomitant]
  6. OXYCODONE (OXYCODONE) [Concomitant]
  7. OXYCONTIN (OXYCODONE HYDROCHLORIDE) [Concomitant]
  8. PROZAC (FLUOXETINE HYDROCHLORIDE) [Concomitant]
  9. THERALENE (ALIMEMAZINE TARTRATE) [Concomitant]
  10. RIVOTRIL (CLONAZEPAM) [Concomitant]
  11. LEXOMIL (BROMAZEPAM) [Concomitant]

REACTIONS (2)
  - Rash morbilliform [None]
  - Rash generalised [None]
